FAERS Safety Report 9633960 (Version 1)
Quarter: 2013Q4

REPORT INFORMATION
  Report Type: Spontaneous
  Country: IL (occurrence: IL)
  Receive Date: 20131021
  Receipt Date: 20131021
  Transmission Date: 20140711
  Serious: Yes (Other)
  Sender: FDA-Public Use
  Company Number: IL-ASTRAZENECA-2013SE04323

PATIENT
  Sex: Female

DRUGS (1)
  1. SYMBICORT [Suspect]
     Dosage: UNKNOWN FREQUENCY
     Route: 055

REACTIONS (3)
  - Asphyxia [Unknown]
  - Rhinorrhoea [Unknown]
  - Cough [Unknown]
